FAERS Safety Report 7255234-8 (Version None)
Quarter: 2011Q1

REPORT INFORMATION
  Report Type: 
  Country: None (occurrence: None)
  Receive Date: 20110129
  Receipt Date: 20100322
  Transmission Date: 20110831
  Serious: No
  Sender: FDA-Public Use
  Company Number: US-ABBOTT-10P-163-0634657-00

PATIENT
  Sex: Female
  Weight: 61.29 kg

DRUGS (5)
  1. HUMIRA [Suspect]
     Indication: CROHN'S DISEASE
     Route: 058
     Dates: start: 20090101
  2. PERCOCET [Concomitant]
     Indication: PRODUCT USED FOR UNKNOWN INDICATION
  3. PENTASA [Concomitant]
     Indication: PRODUCT USED FOR UNKNOWN INDICATION
     Route: 048
     Dates: start: 20050101
  4. LEXAPRO [Concomitant]
     Indication: ANXIOLYTIC THERAPY
  5. PROTONIX [Concomitant]
     Indication: GASTRIC DISORDER

REACTIONS (3)
  - SENSATION OF HEAVINESS [None]
  - OEDEMA PERIPHERAL [None]
  - INJECTION SITE PAIN [None]
